FAERS Safety Report 12650097 (Version 2)
Quarter: 2016Q3

REPORT INFORMATION
  Report Type: Spontaneous
  Country: IT (occurrence: IT)
  Receive Date: 20160813
  Receipt Date: 20160922
  Transmission Date: 20161109
  Serious: Yes (Other)
  Sender: FDA-Public Use
  Company Number: IT-AUROBINDO-AUR-APL-2016-10200

PATIENT
  Age: 81 Year
  Weight: 70 kg

DRUGS (3)
  1. RIBAVIRIN. [Suspect]
     Active Substance: RIBAVIRIN
     Indication: CHRONIC HEPATITIS C
     Dosage: 600 MG, DAILY
     Route: 048
     Dates: start: 20160302, end: 20160622
  2. SOVALDI [Suspect]
     Active Substance: SOFOSBUVIR
     Indication: CHRONIC HEPATITIS C
     Dosage: 400 MG, DAILY
     Route: 048
     Dates: start: 20160302, end: 20160622
  3. ESCITALOPRAM [Concomitant]
     Active Substance: ESCITALOPRAM OXALATE
     Indication: PRODUCT USED FOR UNKNOWN INDICATION
     Dosage: 7 GTT, UNK
     Route: 048

REACTIONS (2)
  - Blood creatine phosphokinase increased [Unknown]
  - Myalgia [Unknown]

NARRATIVE: CASE EVENT DATE: 20160707
